FAERS Safety Report 6896468-1 (Version None)
Quarter: 2010Q3

REPORT INFORMATION
  Report Type: 
  Country: None (occurrence: None)
  Receive Date: 20100802
  Receipt Date: 20090227
  Transmission Date: 20110219
  Serious: No
  Sender: FDA-Public Use
  Company Number: US-PFIZER INC-2009177709

PATIENT
  Sex: Female
  Weight: 127 kg

DRUGS (6)
  1. NORVASC [Suspect]
     Dosage: 5 MG, 1X/DAY
     Route: 048
     Dates: start: 20090101, end: 20090101
  2. NORVASC [Suspect]
     Dosage: UNK
     Dates: start: 20090224
  3. LOTENSIN [Concomitant]
     Dosage: UNK
  4. FUROSEMIDE [Concomitant]
     Dosage: UNK
  5. KLOR-CON [Concomitant]
     Dosage: UNK
  6. PREMARIN [Concomitant]
     Dosage: UNK

REACTIONS (1)
  - EPISTAXIS [None]
